FAERS Safety Report 4673398-7 (Version None)
Quarter: 2005Q2

REPORT INFORMATION
  Report Type: 
  Country: None (occurrence: None)
  Receive Date: 20050523
  Receipt Date: 20050508
  Transmission Date: 20051028
  Serious: Yes (Other)
  Sender: FDA-Public Use
  Company Number: 2005072721

PATIENT
  Sex: Male

DRUGS (1)
  1. GENOTROPIN [Suspect]
     Indication: HYPOPITUITARISM
     Dosage: 4 I.U. (4 I.U. , EVERYDAY), SUBCUTANEOUS
     Route: 058
     Dates: start: 20041201

REACTIONS (2)
  - BLINDNESS UNILATERAL [None]
  - SURGERY [None]
